FAERS Safety Report 9472875 (Version 2)
Quarter: 2013Q3

REPORT INFORMATION
  Report Type: Spontaneous
  Country: US (occurrence: US)
  Receive Date: 20130823
  Receipt Date: 20130926
  Transmission Date: 20140515
  Serious: No
  Sender: FDA-Public Use
  Company Number: US-PFIZER INC-2013241205

PATIENT
  Age: 82 Year
  Sex: Female
  Weight: 56.69 kg

DRUGS (4)
  1. FLECTOR [Suspect]
     Indication: SCOLIOSIS
     Dosage: UNK, EVERY 12 HOURS
  2. FLECTOR [Suspect]
     Indication: SPINAL PAIN
  3. HYDROCODONE W/ACETAMINOPHEN [Suspect]
     Indication: PAIN
     Dosage: 7 MG, 4X/DAY
  4. HYDROCODONE W/ACETAMINOPHEN [Suspect]
     Dosage: 7 MG, 1X/DAY AT NIGHT

REACTIONS (5)
  - Poor quality drug administered [Unknown]
  - Inappropriate schedule of drug administration [Unknown]
  - Constipation [Unknown]
  - Abdominal discomfort [Unknown]
  - Product quality issue [Unknown]
